FAERS Safety Report 24961095 (Version 3)
Quarter: 2025Q1

REPORT INFORMATION
  Report Type: Spontaneous
  Country: TW (occurrence: TW)
  Receive Date: 20250212
  Receipt Date: 20250328
  Transmission Date: 20250408
  Serious: No
  Sender: TOLMAR
  Company Number: TW-TOLMAR, INC.-25TW055720

PATIENT

DRUGS (2)
  1. ELIGARD [Suspect]
     Active Substance: LEUPROLIDE ACETATE
     Indication: Product used for unknown indication
     Dates: start: 20241001
  2. DEVICE [Suspect]
     Active Substance: DEVICE
     Indication: Product used for unknown indication

REACTIONS (3)
  - Intercepted product preparation error [Unknown]
  - Liquid product physical issue [Unknown]
  - Product impurity [Unknown]

NARRATIVE: CASE EVENT DATE: 20241001
